FAERS Safety Report 9264742 (Version 1)
Quarter: 2013Q2

REPORT INFORMATION
  Report Type: Spontaneous
  Country: US (occurrence: None)
  Receive Date: 20130429
  Receipt Date: 20130429
  Transmission Date: 20140414
  Serious: No
  Sender: FDA-Public Use
  Company Number: None

PATIENT
  Age: 56 None
  Sex: Male

DRUGS (3)
  1. POMALYST [Suspect]
     Indication: PLASMA CELL MYELOMA
     Dosage: 2 MG, QD X21/28 DAYS, BY MOUTH
     Route: 048
     Dates: start: 201304
  2. DEXAMETHASONE [Concomitant]
  3. RANITIDINE [Concomitant]

REACTIONS (4)
  - Rash [None]
  - Pruritus [None]
  - Erythema [None]
  - Blood pressure decreased [None]
